FAERS Safety Report 4625540-1 (Version None)
Quarter: 2005Q2

REPORT INFORMATION
  Report Type: 
  Country: None (occurrence: None)
  Receive Date: 20050401
  Receipt Date: 20030113
  Transmission Date: 20051028
  Serious: Yes (Death, Hospitalization, Other)
  Sender: FDA-Public Use
  Company Number: US-MERCK-0301USA01101

PATIENT
  Age: 57 Year
  Sex: Male
  Weight: 91 kg

DRUGS (42)
  1. VIOXX [Suspect]
     Indication: RHEUMATOID ARTHRITIS
     Route: 048
     Dates: start: 20000216, end: 20010103
  2. VIOXX [Suspect]
     Route: 048
     Dates: start: 20000101
  3. VIOXX [Suspect]
     Indication: PAIN
     Route: 048
     Dates: start: 20000216, end: 20010103
  4. VIOXX [Suspect]
     Route: 048
     Dates: start: 20000101
  5. ALTACE [Concomitant]
     Indication: HYPERTENSION
     Route: 065
     Dates: start: 20000401, end: 20010103
  6. ALTACE [Concomitant]
     Indication: MYOCARDIAL INFARCTION
     Route: 065
     Dates: start: 20000401, end: 20010103
  7. INDERAL [Concomitant]
     Indication: HYPERTENSION
     Route: 065
     Dates: start: 20001101, end: 20010103
  8. INDERAL [Concomitant]
     Indication: CARDIAC DISORDER
     Route: 065
     Dates: start: 20001101, end: 20010103
  9. LOPRESSOR [Concomitant]
     Indication: HYPERTENSION
     Route: 048
     Dates: start: 20001101, end: 20010103
  10. LOPRESSOR [Concomitant]
     Indication: CARDIAC DISORDER
     Route: 048
     Dates: start: 20001101, end: 20010103
  11. TOPROL-XL [Concomitant]
     Indication: HYPERTENSION
     Route: 065
     Dates: start: 20001101, end: 20010103
  12. TOPROL-XL [Concomitant]
     Indication: CARDIAC DISORDER
     Route: 065
     Dates: start: 20001101, end: 20010103
  13. HYTRIN [Concomitant]
     Indication: BENIGN PROSTATIC HYPERPLASIA
     Route: 065
     Dates: start: 20000101, end: 20000101
  14. LASIX [Concomitant]
     Indication: OEDEMA PERIPHERAL
     Route: 065
     Dates: start: 20000101, end: 20000101
  15. DEMADEX [Concomitant]
     Indication: OEDEMA PERIPHERAL
     Route: 065
     Dates: start: 20000101, end: 20000101
  16. ALDACTAZIDE [Concomitant]
     Indication: OEDEMA PERIPHERAL
     Route: 065
     Dates: start: 20000101, end: 20000101
  17. ASPIRIN [Concomitant]
     Indication: PROPHYLAXIS
     Route: 065
     Dates: start: 20000418
  18. LIPITOR [Concomitant]
     Indication: BLOOD CHOLESTEROL INCREASED
     Route: 048
     Dates: start: 19990101, end: 20000418
  19. ZOCOR [Concomitant]
     Indication: BLOOD CHOLESTEROL INCREASED
     Route: 065
     Dates: start: 19990101, end: 20000418
  20. ADVIL [Concomitant]
     Route: 065
     Dates: start: 19991017
  21. THEOPHYLLINE [Concomitant]
     Route: 048
     Dates: start: 19950101, end: 20010101
  22. WELLBUTRIN [Concomitant]
     Indication: DEPRESSION
     Route: 048
     Dates: start: 19990101, end: 20000401
  23. WELLBUTRIN [Concomitant]
     Indication: ANXIETY DISORDER
     Route: 048
     Dates: start: 19990101, end: 20000401
  24. KLONOPIN [Concomitant]
     Indication: PANIC DISORDER
     Route: 048
     Dates: start: 19990101, end: 20000401
  25. KLONOPIN [Concomitant]
     Indication: ANXIETY
     Route: 048
     Dates: start: 19990101, end: 20000401
  26. SINGULAIR [Concomitant]
     Route: 048
  27. PROZAC [Concomitant]
     Route: 048
  28. PULMICORT [Concomitant]
     Route: 055
  29. ALLEGRA [Concomitant]
     Route: 048
  30. ALBUTEROL AND IPRATROPIUM BROMIDE [Concomitant]
     Route: 055
  31. NITROGLYCERIN [Concomitant]
     Route: 061
  32. SEREVENT [Concomitant]
     Route: 055
  33. PLAVIX [Concomitant]
     Route: 065
  34. POTASSIUM CHLORIDE [Concomitant]
     Route: 048
  35. BECONASE [Concomitant]
     Route: 065
  36. PRILOSEC [Concomitant]
     Route: 048
  37. NAPROXEN [Concomitant]
     Route: 065
  38. SPIRONOLACTONE [Concomitant]
     Route: 048
  39. TEMAZEPAM [Concomitant]
     Route: 048
  40. HUMIBID L.A. [Concomitant]
     Route: 048
  41. VITAMINS (UNSPECIFIED) [Concomitant]
     Route: 048
  42. ASCORBIC ACID [Concomitant]
     Route: 048

REACTIONS (33)
  - ANGIOPATHY [None]
  - BLOOD GLUCOSE DECREASED [None]
  - BLOOD PH DECREASED [None]
  - CARDIAC ARREST [None]
  - CARDIAC FAILURE CONGESTIVE [None]
  - CARDIOVASCULAR DISORDER [None]
  - CELLULITIS [None]
  - CHEST PAIN [None]
  - CHRONIC OBSTRUCTIVE PULMONARY DISEASE [None]
  - CIRCULATORY COLLAPSE [None]
  - COMA [None]
  - CORONARY ARTERY DISEASE [None]
  - CUSHING'S SYNDROME [None]
  - CUSHINGOID [None]
  - DERMATITIS [None]
  - DIZZINESS POSTURAL [None]
  - DYSPNOEA [None]
  - EAR INFECTION [None]
  - GASTRIC ULCER [None]
  - GASTROENTERITIS VIRAL [None]
  - GENERALISED OEDEMA [None]
  - HYPERKALAEMIA [None]
  - HYPOTENSION [None]
  - INFLUENZA [None]
  - METABOLIC ACIDOSIS [None]
  - MYOCARDIAL INFARCTION [None]
  - OEDEMA PERIPHERAL [None]
  - PAIN IN EXTREMITY [None]
  - PRURITUS [None]
  - PULSE ABSENT [None]
  - RENAL FAILURE [None]
  - SINUS TACHYCARDIA [None]
  - SUDDEN DEATH [None]
